FAERS Safety Report 9400874 (Version 1)
Quarter: 2013Q3

REPORT INFORMATION
  Report Type: Spontaneous
  Country: US (occurrence: None)
  Receive Date: 20130712
  Receipt Date: 20130712
  Transmission Date: 20140515
  Serious: Yes (Other)
  Sender: FDA-Public Use
  Company Number: None

PATIENT
  Age: 52 None
  Sex: Female
  Weight: 98.43 kg

DRUGS (1)
  1. RECLAST [Suspect]
     Route: 042
     Dates: start: 20130612

REACTIONS (6)
  - Pyrexia [None]
  - Tremor [None]
  - Hypoaesthesia [None]
  - Bone pain [None]
  - Cyanosis [None]
  - Pain [None]
